FAERS Safety Report 9855041 (Version 1)
Quarter: 2014Q1

REPORT INFORMATION
  Report Type: Spontaneous
  Country: JP (occurrence: None)
  Receive Date: 20140127
  Receipt Date: 20140127
  Transmission Date: 20141002
  Serious: Yes (Hospitalization, Other)
  Sender: FDA-Public Use
  Company Number: 2014JP00046

PATIENT
  Age: 61 Year
  Sex: Female

DRUGS (2)
  1. GEMCITABINE (GEMCITABINE) INJECTION [Suspect]
     Indication: NON-SMALL CELL LUNG CANCER
     Dosage: 700 MG/M2, DAYS, 8
     Dates: start: 201010
  2. BEVACIZUMAB [Suspect]
     Indication: NON-SMALL CELL LUNG CANCER

REACTIONS (1)
  - Thrombotic thrombocytopenic purpura [None]
